FAERS Safety Report 8415103-4 (Version None)
Quarter: 2012Q2

REPORT INFORMATION
  Report Type: 
  Country: None (occurrence: None)
  Receive Date: 20120606
  Receipt Date: 20120529
  Transmission Date: 20120825
  Serious: Yes (Other)
  Sender: FDA-Public Use
  Company Number: US-ASTRAZENECA-2011SE32246

PATIENT
  Age: 52 Year
  Sex: Female
  Weight: 72.6 kg

DRUGS (8)
  1. FLONASE [Concomitant]
     Indication: HYPERSENSITIVITY
  2. NORVASC [Concomitant]
     Indication: BLOOD PRESSURE
  3. CALCIUM [Concomitant]
     Indication: OSTEOPENIA
     Dosage: DAILY
  4. NEXIUM [Suspect]
     Route: 048
     Dates: start: 20040101, end: 20090101
  5. ZANTAC [Concomitant]
     Dates: start: 20040101
  6. VITAMIN D [Concomitant]
     Indication: OSTEOPENIA
     Dosage: DAILY
  7. ACIPHEX [Concomitant]
     Indication: GASTROOESOPHAGEAL REFLUX DISEASE
  8. NEXIUM [Suspect]
     Indication: GASTROOESOPHAGEAL REFLUX DISEASE
     Route: 048
     Dates: start: 20030312

REACTIONS (6)
  - TIBIA FRACTURE [None]
  - VITAMIN D DEFICIENCY [None]
  - OSTEOPOROSIS [None]
  - FIBULA FRACTURE [None]
  - ANKLE FRACTURE [None]
  - OSTEOPENIA [None]
